FAERS Safety Report 7177621-9 (Version None)
Quarter: 2010Q4

REPORT INFORMATION
  Report Type: 
  Country: None (occurrence: None)
  Receive Date: 20101220
  Receipt Date: 20101208
  Transmission Date: 20110411
  Serious: No
  Sender: FDA-Public Use
  Company Number: US-BIOGENIDEC-2010BI043521

PATIENT
  Age: 33 Year
  Sex: Female

DRUGS (1)
  1. AVONEX [Suspect]
     Indication: MULTIPLE SCLEROSIS
     Route: 030
     Dates: start: 20070704

REACTIONS (8)
  - CONTUSION [None]
  - CRYING [None]
  - ERYTHEMA [None]
  - HAEMORRHAGE [None]
  - INJECTION SITE LACERATION [None]
  - INJECTION SITE PAIN [None]
  - IRRITABILITY [None]
  - STRESS [None]
